FAERS Safety Report 14978600 (Version 2)
Quarter: 2018Q2

REPORT INFORMATION
  Report Type: Spontaneous
  Country: JP (occurrence: JP)
  Receive Date: 20180606
  Receipt Date: 20180620
  Transmission Date: 20180711
  Serious: Yes (Other)
  Sender: FDA-Public Use
  Company Number: JP-TEVA-2018-JP-900001

PATIENT
  Age: 10 Year
  Sex: Female

DRUGS (1)
  1. THIAMINE. [Suspect]
     Active Substance: THIAMINE
     Indication: MITOCHONDRIAL ENCEPHALOMYOPATHY
     Dosage: DOSE RANGED FROM 1MG/DAY TO 1G/DAY
     Route: 065

REACTIONS (4)
  - Dysarthria [Recovering/Resolving]
  - Decreased activity [Recovering/Resolving]
  - Drooling [Recovering/Resolving]
  - Hypotonia [Recovering/Resolving]
